FAERS Safety Report 8134221-1 (Version None)
Quarter: 2012Q1

REPORT INFORMATION
  Report Type: 
  Country: None (occurrence: None)
  Receive Date: 20120214
  Receipt Date: 20120206
  Transmission Date: 20120608
  Serious: Yes (Other)
  Sender: FDA-Public Use
  Company Number: US-BAYER-2012-005071

PATIENT
  Age: 34 Year
  Sex: Female
  Weight: 69.388 kg

DRUGS (20)
  1. MOTRIN [Concomitant]
     Indication: PAIN
     Dosage: UNK
     Dates: start: 20091231, end: 20100101
  2. LAMICTAL [Concomitant]
     Dosage: UNK
     Dates: start: 20090101
  3. CICLESONIDE [Concomitant]
  4. YASMIN [Suspect]
     Indication: CONTRACEPTION
     Dosage: UNK
     Dates: start: 20060501, end: 20081201
  5. YAZ [Suspect]
     Indication: POLYCYSTIC OVARIES
     Dosage: UNK
     Dates: start: 20090101
  6. HYDROCODONE [Concomitant]
     Indication: PAIN
     Dosage: UNK
     Dates: start: 20100101, end: 20100106
  7. ADVAIR DISKUS 100/50 [Concomitant]
     Dosage: UNK
     Dates: start: 20010101
  8. NASAL PREPARATIONS [Concomitant]
  9. UNCODEABLE ^UNCLASSIFIABLE^ [Concomitant]
  10. YASMIN [Suspect]
     Indication: POLYCYSTIC OVARIES
     Dosage: UNK
     Dates: start: 20091201
  11. SINGULAIR [Concomitant]
     Dosage: UNK
     Dates: start: 20050101
  12. ALBUTEROL [Concomitant]
     Dosage: UNK
     Dates: start: 19850101
  13. KLONOPIN [Concomitant]
     Dosage: UNK
     Dates: start: 20090101
  14. CLINDAMYCIN [Concomitant]
     Indication: TOOTH INFECTION
     Dosage: UNK
     Dates: start: 20100101, end: 20100102
  15. METFORMIN HCL [Concomitant]
  16. YAZ [Suspect]
     Indication: CONTRACEPTION
     Dosage: UNK
     Dates: start: 20060701
  17. YAZ [Suspect]
     Dosage: UNK
     Dates: start: 20100301
  18. MULTI-VITAMIN [Concomitant]
     Dosage: UNK
     Dates: start: 20050101
  19. DROSPIRENONE AND ETHINYL ESTRADIOL [Suspect]
     Indication: CONTRACEPTION
     Dosage: UNK
     Dates: start: 20100401, end: 20100501
  20. DROSPIRENONE AND ETHINYL ESTRADIOL [Suspect]
     Indication: POLYCYSTIC OVARIES

REACTIONS (8)
  - CHOLECYSTITIS CHRONIC [None]
  - DEPRESSION [None]
  - GALLBLADDER DISORDER [None]
  - FEAR OF DEATH [None]
  - BILIARY DYSKINESIA [None]
  - ABDOMINAL PAIN [None]
  - EMOTIONAL DISTRESS [None]
  - NERVOUSNESS [None]
